FAERS Safety Report 6461996-X (Version None)
Quarter: 2009Q4

REPORT INFORMATION
  Report Type: 
  Country: None (occurrence: None)
  Receive Date: 20091024
  Receipt Date: 20091109
  Transmission Date: 20100525
  Serious: Yes (Hospitalization, Other)
  Sender: FDA-Public Use
  Company Number: 2009AC000214

PATIENT
  Age: 64 Year
  Sex: Male

DRUGS (27)
  1. DIGOXIN [Suspect]
     Dosage: 0.25 MG; QD; PO
     Route: 048
     Dates: end: 20080808
  2. TOPROL-XL [Concomitant]
  3. LASIX [Concomitant]
  4. LESCOL [Concomitant]
  5. HYDRALAZINE HCL [Concomitant]
  6. TRICOR [Concomitant]
  7. WARFARIN SODIUM [Concomitant]
  8. NORVASC [Concomitant]
  9. IMDUR [Concomitant]
  10. LANTUS [Concomitant]
  11. NOVOLOG [Concomitant]
  12. LOVASTATIN [Concomitant]
  13. METFORMIN HCL [Concomitant]
  14. AMLODIPINE [Concomitant]
  15. FENOFIBRATE [Concomitant]
  16. HYDRALAZINE HCL [Concomitant]
  17. INSULIN [Concomitant]
  18. GLARGINE [Concomitant]
  19. ISOSORBIDE MONONITRATE [Concomitant]
  20. METOPROLOL [Concomitant]
  21. PRAVASTAIN [Concomitant]
  22. TOPROL-XL [Concomitant]
  23. WARFARIN SODIUM [Concomitant]
  24. FUROSEMIDE [Concomitant]
  25. LOTREL [Concomitant]
  26. METFORMIN HCL [Concomitant]
  27. NOVOLIN [Concomitant]

REACTIONS (27)
  - ANAEMIA [None]
  - ANHEDONIA [None]
  - ANXIETY [None]
  - ASTHENIA [None]
  - CARDIAC FAILURE CONGESTIVE [None]
  - CARDIOACTIVE DRUG LEVEL INCREASED [None]
  - CATARACT [None]
  - CONFUSIONAL STATE [None]
  - DIABETIC RETINOPATHY [None]
  - DIARRHOEA [None]
  - FALL [None]
  - FATIGUE [None]
  - HYPOGLYCAEMIA [None]
  - INTERNATIONAL NORMALISED RATIO DECREASED [None]
  - MENTAL STATUS CHANGES [None]
  - MULTIPLE INJURIES [None]
  - OESOPHAGEAL MASS [None]
  - PAIN [None]
  - PERIPHERAL VASCULAR DISORDER [None]
  - PHOTOPSIA [None]
  - PNEUMONIA [None]
  - RENAL FAILURE CHRONIC [None]
  - RETINAL DETACHMENT [None]
  - RETINAL DISORDER [None]
  - THERAPEUTIC AGENT TOXICITY [None]
  - VISION BLURRED [None]
  - VISUAL ACUITY REDUCED [None]
